FAERS Safety Report 8615534-3 (Version None)
Quarter: 2012Q3

REPORT INFORMATION
  Report Type: 
  Country: None (occurrence: None)
  Receive Date: 20120809
  Receipt Date: 20120725
  Transmission Date: 20120928
  Serious: Yes (Other)
  Sender: FDA-Public Use
  Company Number: TPA2012A01304

PATIENT
  Age: 57 Year
  Sex: Female
  Weight: 58.0604 kg

DRUGS (5)
  1. ACTOS [Suspect]
     Indication: TYPE 2 DIABETES MELLITUS
     Dates: start: 20020301, end: 20110201
  2. DIABETA [Concomitant]
  3. GLUCOTROL [Concomitant]
  4. METFORMIN HCL [Concomitant]
  5. JANUVIA [Concomitant]

REACTIONS (5)
  - URETERIC CANCER [None]
  - LUNG CARCINOMA CELL TYPE UNSPECIFIED STAGE IV [None]
  - SKIN CANCER [None]
  - HEPATIC CANCER STAGE IV [None]
  - BLADDER CANCER [None]
